FAERS Safety Report 4818283-2 (Version None)
Quarter: 2005Q4

REPORT INFORMATION
  Report Type: 
  Country: None (occurrence: None)
  Receive Date: 20051031
  Receipt Date: 20051018
  Transmission Date: 20060501
  Serious: Yes (Death)
  Sender: FDA-Public Use
  Company Number: 2005JP001666

PATIENT
  Age: 84 Year
  Sex: Male

DRUGS (10)
  1. FUNGUARD(MICAFUNGIN) INJECTION [Suspect]
     Indication: CANDIDIASIS
     Dosage: 100.00 MG, UID/QD, IV DROP ; 300.00 MG, UID/QD, IV DRIP
     Route: 041
     Dates: start: 20050726, end: 20050729
  2. FUNGUARD(MICAFUNGIN) INJECTION [Suspect]
     Indication: CANDIDIASIS
     Dosage: 100.00 MG, UID/QD, IV DROP ; 300.00 MG, UID/QD, IV DRIP
     Route: 041
     Dates: start: 20050810, end: 20050812
  3. PRODIF (FOSFLUCONAZOLE) [Concomitant]
  4. MEROPEN (MEROPENEM) [Concomitant]
  5. BROACT (CEFPIROME SULFATE) INJECTION [Concomitant]
  6. CIPROXAN-I.V. (CIPROFLOXACIN) INJECTION [Concomitant]
  7. MIRACLID (ULINASTATIN) INJECTION [Concomitant]
  8. REMINARON (GABEXATE MESILATE) INJECTION [Concomitant]
  9. RADICUT (EDARAVONE) INJECTION [Concomitant]
  10. VENILON (IMMUNOGLOBULIN HUMAN NORMAL) INJECTION [Concomitant]

REACTIONS (8)
  - CARDIO-RESPIRATORY ARREST [None]
  - DISSEMINATED INTRAVASCULAR COAGULATION [None]
  - HEPATIC FAILURE [None]
  - HEPATIC FUNCTION ABNORMAL [None]
  - PUNCTURE SITE HAEMORRHAGE [None]
  - RENAL FAILURE [None]
  - RESPIRATORY ARREST [None]
  - STAPHYLOCOCCAL INFECTION [None]
